FAERS Safety Report 7201599-2 (Version None)
Quarter: 2010Q4

REPORT INFORMATION
  Report Type: 
  Country: None (occurrence: None)
  Receive Date: 20101216
  Receipt Date: 20101201
  Transmission Date: 20110411
  Serious: Yes (Hospitalization, Other)
  Sender: FDA-Public Use
  Company Number: 2010AP002620

PATIENT
  Sex: Female

DRUGS (1)
  1. PAROXETINE HYDROCHLORIDE [Suspect]
     Indication: DEPRESSION
     Dosage: 20 MG; QD

REACTIONS (7)
  - ABNORMAL BEHAVIOUR [None]
  - MATERNAL DRUGS AFFECTING FOETUS [None]
  - MOTOR DYSFUNCTION [None]
  - PREMATURE LABOUR [None]
  - PREMATURE RUPTURE OF MEMBRANES [None]
  - PULMONARY ARTERY STENOSIS CONGENITAL [None]
  - RIGHT VENTRICLE OUTFLOW TRACT OBSTRUCTION [None]
